FAERS Safety Report 4702787-7 (Version None)
Quarter: 2005Q2

REPORT INFORMATION
  Report Type: 
  Country: None (occurrence: None)
  Receive Date: 20050628
  Receipt Date: 20050628
  Transmission Date: 20051028
  Serious: Yes (Other)
  Sender: FDA-Public Use
  Company Number: None

PATIENT
  Sex: Male
  Weight: 88.4514 kg

DRUGS (2)
  1. METOCLOPRAMIDE INJECTION [Suspect]
     Indication: PREOPERATIVE CARE
     Dosage: 10 MG IV - 1 DOSE ONLY   (08:20)
     Route: 042
     Dates: start: 20050610
  2. TYLENOL W/ CODEINE NO. 3 [Concomitant]

REACTIONS (3)
  - ABNORMAL BEHAVIOUR [None]
  - ANXIETY [None]
  - HYPERHIDROSIS [None]
